FAERS Safety Report 20636054 (Version 2)
Quarter: 2022Q2

REPORT INFORMATION
  Report Type: Other
  Country: US (occurrence: US)
  Receive Date: 20220325
  Receipt Date: 20220412
  Transmission Date: 20220720
  Serious: Yes (Hospitalization, Other)
  Sender: FDA-Public Use
  Company Number: US-INTERCEPT-PM2022000614

PATIENT
  Age: 46 Year
  Sex: Female
  Weight: 106.5 kg

DRUGS (54)
  1. OCALIVA [Suspect]
     Active Substance: OBETICHOLIC ACID
     Indication: Primary biliary cholangitis
     Dosage: 5 MILLIGRAM, QD
     Route: 048
     Dates: start: 20200417
  2. OCALIVA [Suspect]
     Active Substance: OBETICHOLIC ACID
     Dosage: 5 MILLIGRAM, QD
     Route: 048
     Dates: start: 20210219, end: 20220202
  3. OCALIVA [Suspect]
     Active Substance: OBETICHOLIC ACID
     Dosage: 5 MILLIGRAM, QD
     Route: 048
     Dates: start: 2022
  4. DEMADEX [Concomitant]
     Active Substance: TORSEMIDE
     Dosage: 20 MILLIGRAM, BID
     Route: 048
  5. DEMADEX [Concomitant]
     Active Substance: TORSEMIDE
     Dosage: 80 MILLIGRAM, QD
     Route: 048
     Dates: start: 20210530, end: 20210630
  6. DEMADEX [Concomitant]
     Active Substance: TORSEMIDE
     Dosage: 40 MILLIGRAM, BID
  7. DEMADEX [Concomitant]
     Active Substance: TORSEMIDE
     Dosage: 40MG IN MORNING, 20MG AT NIGHT
  8. DEMADEX [Concomitant]
     Active Substance: TORSEMIDE
     Dosage: 100 MILLIGRAM, QHS
     Route: 048
     Dates: start: 20210817
  9. TOPROL XL [Concomitant]
     Active Substance: METOPROLOL SUCCINATE
     Indication: Chest discomfort
     Dosage: 25 MILLIGRAM, QD
     Route: 048
     Dates: start: 20210315
  10. TOPROL XL [Concomitant]
     Active Substance: METOPROLOL SUCCINATE
     Indication: Chronic kidney disease
  11. TOPROL XL [Concomitant]
     Active Substance: METOPROLOL SUCCINATE
     Indication: Coronary artery disease
  12. TOPROL XL [Concomitant]
     Active Substance: METOPROLOL SUCCINATE
     Indication: Coronary arterial stent insertion
  13. OXYGEN [Concomitant]
     Active Substance: OXYGEN
     Dosage: 2 LITERS O2 AT REST; 2 LITERS O2 WITH ACTIVITY
     Route: 045
     Dates: start: 20210103
  14. ECOTRIN [Concomitant]
     Active Substance: ASPIRIN
     Dosage: 81 MILLIGRAM, QD
     Route: 048
     Dates: start: 20210104
  15. APRESOLINE HYDROCHLORIDE [Concomitant]
     Active Substance: HYDRALAZINE HYDROCHLORIDE
     Dosage: 25 MILLIGRAM, EVERY 12 HOURS
     Route: 048
     Dates: start: 20210103
  16. APRESOLINE HYDROCHLORIDE [Concomitant]
     Active Substance: HYDRALAZINE HYDROCHLORIDE
     Dosage: 75 MILLIGRAM, EVERY 8 HOURS
     Route: 048
  17. APRESOLINE HYDROCHLORIDE [Concomitant]
     Active Substance: HYDRALAZINE HYDROCHLORIDE
     Dosage: 25 MILLIGRAM, BID
     Route: 048
  18. NITROSTAT [Concomitant]
     Active Substance: NITROGLYCERIN
     Indication: Chest pain
     Dosage: 0.4 MG, EVERY 5 MINS PRN
     Route: 060
     Dates: start: 20210103
  19. ROXICODONE [Concomitant]
     Active Substance: OXYCODONE HYDROCHLORIDE
     Indication: Pain
     Dosage: 5 MILLIGRAM, Q6H
     Route: 048
     Dates: start: 20210103
  20. ROXICODONE [Concomitant]
     Active Substance: OXYCODONE HYDROCHLORIDE
     Indication: Acute myocardial infarction
  21. ROXICODONE [Concomitant]
     Active Substance: OXYCODONE HYDROCHLORIDE
     Indication: Chest discomfort
  22. ROXICODONE [Concomitant]
     Active Substance: OXYCODONE HYDROCHLORIDE
     Indication: Chronic kidney disease
  23. TRESIBA [Concomitant]
     Active Substance: INSULIN DEGLUDEC
     Dosage: 80 INTERNATIONAL UNIT, QHS
     Route: 058
  24. TRESIBA [Concomitant]
     Active Substance: INSULIN DEGLUDEC
     Dosage: 110 INTERNATIONAL UNIT, QHS
     Route: 058
     Dates: start: 20210530
  25. PRILOSEC [Concomitant]
     Active Substance: OMEPRAZOLE MAGNESIUM
     Dosage: 40 MILLIGRAM, QD
     Route: 048
  26. LIPITOR [Concomitant]
     Active Substance: ATORVASTATIN CALCIUM
     Indication: Ischaemic cardiomyopathy
     Dosage: 10 MILLIGRAM, QD
     Route: 048
     Dates: start: 20210208, end: 20210817
  27. LIPITOR [Concomitant]
     Active Substance: ATORVASTATIN CALCIUM
     Indication: Hepatic cirrhosis
  28. LEXAPRO [Concomitant]
     Active Substance: ESCITALOPRAM OXALATE
     Dosage: 10 MILLIGRAM, QHS
     Route: 048
  29. VITAMIN D3 [Concomitant]
     Active Substance: CHOLECALCIFEROL
     Indication: Vitamin D deficiency
     Dosage: 2000 INTERNATIONAL UNIT, QD
     Route: 048
  30. VITAMIN D3 [Concomitant]
     Active Substance: CHOLECALCIFEROL
     Dosage: 5000 UNITS, QD, MON TO SAT
     Route: 048
     Dates: start: 20210210
  31. DRISDOL [Concomitant]
     Active Substance: ERGOCALCIFEROL
     Indication: Vitamin D deficiency
     Dosage: 50000 UNIT EVERY SUNDAY
     Route: 048
     Dates: start: 20210210
  32. COREG [Concomitant]
     Active Substance: CARVEDILOL
     Dosage: 12.5 MILLIGRAM, QD
     Route: 048
     Dates: start: 20210530, end: 20210630
  33. COREG [Concomitant]
     Active Substance: CARVEDILOL
     Dosage: 12.5 MILLIGRAM, BID
     Route: 048
     Dates: start: 20210530, end: 20210630
  34. COREG [Concomitant]
     Active Substance: CARVEDILOL
     Dosage: 25 MILLIGRAM, BID
     Route: 048
  35. NORVASC [Concomitant]
     Active Substance: AMLODIPINE BESYLATE
     Dosage: 10 MILLIGRAM, QD
     Route: 048
     Dates: start: 20210530, end: 20210720
  36. FIASP [Concomitant]
     Active Substance: INSULIN ASPART
     Dosage: 30 UNITS TID AFTER MEALS
     Route: 058
  37. FIASP [Concomitant]
     Active Substance: INSULIN ASPART
     Dosage: 32 UNITS, TID, BEFORE MEALS
     Route: 058
     Dates: start: 20210530
  38. XIFAXAN [Concomitant]
     Active Substance: RIFAXIMIN
     Indication: Irritable bowel syndrome
     Dosage: 550 MILLIGRAM, BID
     Route: 048
     Dates: start: 20210530, end: 20210630
  39. ASPIRIN [Concomitant]
     Active Substance: ASPIRIN
     Dosage: 81 MILLIGRAM
     Route: 048
     Dates: start: 20210104
  40. LOMOTIL [Concomitant]
     Active Substance: ATROPINE SULFATE\DIPHENOXYLATE HYDROCHLORIDE
     Dosage: 1 TABLET (2.5-0.025MG), QID, PRN
     Route: 048
  41. NITROGLYCERIN [Concomitant]
     Active Substance: NITROGLYCERIN
     Dosage: 0.4 MILLIGRAM, PRN
     Route: 060
     Dates: start: 20210104
  42. EFFIENT [Concomitant]
     Active Substance: PRASUGREL HYDROCHLORIDE
     Dosage: 10 MILLIGRAM, QD
     Route: 048
     Dates: start: 20210104
  43. REQUIP [Concomitant]
     Active Substance: ROPINIROLE HYDROCHLORIDE
     Dosage: 0.25 MILLIGRAM, TID
     Route: 048
     Dates: start: 20190624
  44. REQUIP [Concomitant]
     Active Substance: ROPINIROLE HYDROCHLORIDE
     Dosage: 0.25 MILLIGRAM, QHS
     Route: 048
  45. SODIUM CHLORIDE [Concomitant]
     Active Substance: SODIUM CHLORIDE
     Dosage: 10 MILLILITER, BID
     Route: 042
     Dates: start: 20210208
  46. PHENERGAN [Concomitant]
     Active Substance: PROMETHAZINE HYDROCHLORIDE
     Indication: Nausea
     Dosage: 25 MILLIGRAM, Q6H, PRN
     Route: 048
     Dates: start: 20200116
  47. PHENERGAN [Concomitant]
     Active Substance: PROMETHAZINE HYDROCHLORIDE
     Indication: Vomiting
  48. DEFINITY [Concomitant]
     Active Substance: PERFLUTREN
     Dosage: 1.3 ML IN 8.7 ML OF SALINE
     Route: 042
     Dates: start: 20210208
  49. LOMITAPIDE MESYLATE [Concomitant]
     Active Substance: LOMITAPIDE MESYLATE
     Dosage: 0.25 MILLIGRAM
     Route: 048
  50. BUMEX [Concomitant]
     Active Substance: BUMETANIDE
     Dosage: 4 MILLIGRAM, BID
     Route: 048
  51. ROCALTROL [Concomitant]
     Active Substance: CALCITRIOL
     Dosage: 0.25 MICROGRAM
     Route: 048
  52. NEURONTIN [Concomitant]
     Active Substance: GABAPENTIN
     Dosage: 300 MILLIGRAM, TID
     Route: 048
  53. ZAROXOLYN [Concomitant]
     Active Substance: METOLAZONE
     Dosage: 5 MILLIGRAM, QD, PRN
     Route: 048
  54. MODERNA COVID-19 VACCINE [Concomitant]
     Active Substance: ELASOMERAN
     Dosage: RECEIVED 2 DOSES

REACTIONS (27)
  - Cardiac failure congestive [Unknown]
  - Cardiac failure acute [Unknown]
  - Dyspnoea [Not Recovered/Not Resolved]
  - Weight increased [Not Recovered/Not Resolved]
  - Oedema [Unknown]
  - Hypoxia [Not Recovered/Not Resolved]
  - Type 2 diabetes mellitus [Not Recovered/Not Resolved]
  - Coronary artery disease [Not Recovered/Not Resolved]
  - Chronic kidney disease [Not Recovered/Not Resolved]
  - End stage renal disease [Not Recovered/Not Resolved]
  - Interstitial lung disease [Not Recovered/Not Resolved]
  - Acute kidney injury [Recovering/Resolving]
  - Left ventricular end-diastolic pressure increased [Unknown]
  - Multiple organ dysfunction syndrome [Unknown]
  - Peripheral swelling [Unknown]
  - Haemodialysis [Not Recovered/Not Resolved]
  - Chest pain [Unknown]
  - Fluid retention [Unknown]
  - Troponin increased [Not Recovered/Not Resolved]
  - Decreased appetite [Unknown]
  - Mobility decreased [Not Recovered/Not Resolved]
  - Percutaneous coronary intervention [Unknown]
  - General physical health deterioration [Not Recovered/Not Resolved]
  - Quality of life decreased [Unknown]
  - Myalgia [Unknown]
  - Tremor [Unknown]
  - Nausea [Not Recovered/Not Resolved]

NARRATIVE: CASE EVENT DATE: 20201122
